FAERS Safety Report 12244020 (Version 1)
Quarter: 2016Q2

REPORT INFORMATION
  Report Type: Spontaneous
  Country: NL (occurrence: NL)
  Receive Date: 20160406
  Receipt Date: 20160406
  Transmission Date: 20160815
  Serious: Yes (Life-Threatening, Hospitalization)
  Sender: FDA-Public Use
  Company Number: NL-WATSON-2016-06963

PATIENT
  Age: 57 Year
  Sex: Male

DRUGS (1)
  1. VERAPAMIL (UNKNOWN) [Suspect]
     Active Substance: VERAPAMIL HYDROCHLORIDE
     Indication: PRODUCT USED FOR UNKNOWN INDICATION
     Dosage: CHRONIC LOW-DOSE
     Route: 065

REACTIONS (3)
  - Shock [Recovering/Resolving]
  - Bradycardia [Unknown]
  - Toxicity to various agents [Recovering/Resolving]
